FAERS Safety Report 19288449 (Version 2)
Quarter: 2021Q2

REPORT INFORMATION
  Report Type: Report from Study
  Country: MX (occurrence: MX)
  Receive Date: 20210522
  Receipt Date: 20210615
  Transmission Date: 20210717
  Serious: Yes (Other)
  Sender: FDA-Public Use
  Company Number: NVSC2021MX109967

PATIENT
  Age: 68 Year
  Sex: Male
  Weight: 74 kg

DRUGS (9)
  1. ACETYLSALICYLIC ACID [Concomitant]
     Active Substance: ASPIRIN
     Indication: INFARCTION
     Dosage: 1 DF, QD (AT NIGHT)
     Route: 048
     Dates: start: 202102
  2. PENTOXIFYLLINE. [Concomitant]
     Active Substance: PENTOXIFYLLINE
     Indication: VARICOSE VEIN
     Dosage: 1 DF, QD (AT NIGHT)
     Route: 048
  3. KETOROLAC [Concomitant]
     Active Substance: KETOROLAC TROMETHAMINE
     Indication: DIABETIC NEUROPATHY
     Dosage: 2 DF, PRN
     Route: 048
  4. ENTRESTO [Suspect]
     Active Substance: SACUBITRIL\VALSARTAN
     Dosage: 1 DF, QD
     Route: 048
     Dates: start: 202102
  5. TRANSENDIS [Suspect]
     Active Substance: TELMISARTAN
     Indication: HYPERTENSION
     Dosage: 1 DF, QD
     Route: 048
     Dates: start: 202102
  6. INSULIN [Concomitant]
     Active Substance: INSULIN NOS
     Indication: TYPE 2 DIABETES MELLITUS
     Dosage: 30 IU, QD
     Route: 058
     Dates: start: 202102
  7. ENTRESTO [Suspect]
     Active Substance: SACUBITRIL\VALSARTAN
     Indication: CARDIAC FAILURE
     Dosage: UNK
     Route: 048
  8. MICCIL [Concomitant]
     Indication: HYPERTENSION
     Dosage: 1 DF, QD
     Route: 048
     Dates: start: 202102
  9. METFORMIN [Concomitant]
     Active Substance: METFORMIN HYDROCHLORIDE
     Indication: TYPE 2 DIABETES MELLITUS
     Dosage: 3 DF, QD
     Route: 048

REACTIONS (4)
  - Orthopnoea [Unknown]
  - Off label use [Unknown]
  - Dyspnoea [Recovered/Resolved]
  - Epigastric discomfort [Recovered/Resolved]

NARRATIVE: CASE EVENT DATE: 20210504
